FAERS Safety Report 5857990-X (Version None)
Quarter: 2008Q3

REPORT INFORMATION
  Report Type: 
  Country: None (occurrence: None)
  Receive Date: 20080818
  Receipt Date: 20080429
  Transmission Date: 20090109
  Serious: Yes (Life-Threatening, Hospitalization, Other)
  Sender: FDA-Public Use
  Company Number: WAES 0803USA04487

PATIENT
  Age: 70 Year
  Sex: Male

DRUGS (13)
  1. JANUVIA [Suspect]
     Indication: TYPE 2 DIABETES MELLITUS
     Dosage: 100 MG/DAILY/PO
     Route: 047
     Dates: start: 20080228, end: 20080311
  2. ACTONEL [Concomitant]
  3. ACTOS [Concomitant]
  4. ADVAIR DISKUS 100/50 [Concomitant]
  5. AMARYL [Concomitant]
  6. CTM [Concomitant]
  7. DIOVAN [Concomitant]
  8. LASIX [Concomitant]
  9. LIPITOR [Concomitant]
  10. LORTAB [Concomitant]
  11. LOTREL [Concomitant]
  12. PLAVIX [Concomitant]
  13. DIAZEPAM [Concomitant]

REACTIONS (1)
  - ANGIOEDEMA [None]
